FAERS Safety Report 14352807 (Version 1)
Quarter: 2018Q1

REPORT INFORMATION
  Report Type: Report from Study
  Country: US (occurrence: US)
  Receive Date: 20180104
  Receipt Date: 20180104
  Transmission Date: 20180509
  Serious: Yes (Death, Hospitalization, Other)
  Sender: FDA-Public Use
  Company Number: US-EXELIXIS-XL18415005347

PATIENT
  Age: 62 Year
  Sex: Male
  Weight: 68.7 kg

DRUGS (1)
  1. XL184 [Suspect]
     Active Substance: CABOZANTINIB
     Indication: PAPILLARY THYROID CANCER
     Dosage: 60 MG, QD
     Route: 048
     Dates: start: 20140912, end: 20150216

REACTIONS (8)
  - Haemorrhage intracranial [Fatal]
  - Pelvic venous thrombosis [Unknown]
  - Paralysis [Unknown]
  - Diarrhoea [Recovered/Resolved]
  - Dehydration [Recovered/Resolved]
  - Seizure like phenomena [Unknown]
  - Acute kidney injury [Recovered/Resolved]
  - Fatigue [Unknown]

NARRATIVE: CASE EVENT DATE: 20150217
